FAERS Safety Report 10090179 (Version 9)
Quarter: 2017Q1

REPORT INFORMATION
  Report Type: Spontaneous
  Country: US (occurrence: US)
  Receive Date: 20140421
  Receipt Date: 20170109
  Transmission Date: 20170428
  Serious: Yes (Death, Hospitalization, Other)
  Sender: FDA-Public Use
  Company Number: US-GLAXOSMITHKLINE-A1027323A

PATIENT
  Age: 47 Year
  Sex: Female
  Weight: 61.8 kg

DRUGS (15)
  1. FLOLAN [Suspect]
     Active Substance: EPOPROSTENOL SODIUM
     Dosage: 40 DF, UNK
  2. FLOLAN [Suspect]
     Active Substance: EPOPROSTENOL SODIUM
     Indication: PULMONARY ARTERIAL HYPERTENSION
     Dosage: 1.5 VIAL STRENGTH, 30,000 NG/ML CONCENTRATION, 71 ML/DAY
     Route: 042
     Dates: start: 19991013
  3. FLOLAN [Suspect]
     Active Substance: EPOPROSTENOL SODIUM
     Dosage: 22 NG/KG/MIN
  4. FLOLAN [Suspect]
     Active Substance: EPOPROSTENOL SODIUM
     Dosage: UNK
  5. REVATIO [Concomitant]
     Active Substance: SILDENAFIL CITRATE
  6. COUMADIN [Concomitant]
     Active Substance: WARFARIN SODIUM
  7. WARFARIN [Concomitant]
     Active Substance: WARFARIN
  8. LETAIRIS [Suspect]
     Active Substance: AMBRISENTAN
     Indication: PRODUCT USED FOR UNKNOWN INDICATION
     Dosage: UNK
     Dates: start: 20160923, end: 2016
  9. FLOLAN [Suspect]
     Active Substance: EPOPROSTENOL SODIUM
     Dosage: 20 DF, CO
  10. FLOLAN [Suspect]
     Active Substance: EPOPROSTENOL SODIUM
     Dosage: UNK, CO
     Route: 042
  11. FLOLAN [Suspect]
     Active Substance: EPOPROSTENOL SODIUM
     Dosage: UNK
  12. FLOLAN [Suspect]
     Active Substance: EPOPROSTENOL SODIUM
     Indication: PULMONARY ARTERIAL HYPERTENSION
  13. FLOLAN [Suspect]
     Active Substance: EPOPROSTENOL SODIUM
     Dosage: 20 DF, CO
  14. FLOLAN [Suspect]
     Active Substance: EPOPROSTENOL SODIUM
     Indication: PULMONARY ARTERIAL HYPERTENSION
     Dosage: UNK
  15. FLOLAN [Suspect]
     Active Substance: EPOPROSTENOL SODIUM
     Dosage: UNK
     Dates: start: 20160715

REACTIONS (16)
  - Cardiac disorder [Unknown]
  - Fluid retention [Unknown]
  - Liver disorder [Unknown]
  - Right ventricular failure [Unknown]
  - Renal impairment [Unknown]
  - Death [Fatal]
  - Platelet count decreased [Unknown]
  - Hyponatraemia [Unknown]
  - Swelling [Unknown]
  - Fluid overload [Unknown]
  - Hypotension [Unknown]
  - Device related infection [Recovered/Resolved]
  - Renal disorder [Unknown]
  - Hospitalisation [Not Recovered/Not Resolved]
  - Headache [Unknown]
  - Pruritus [Unknown]

NARRATIVE: CASE EVENT DATE: 20130531
